FAERS Safety Report 10023347 (Version 3)
Quarter: 2014Q2

REPORT INFORMATION
  Report Type: Spontaneous
  Country: US (occurrence: US)
  Receive Date: 20140320
  Receipt Date: 20140422
  Transmission Date: 20141212
  Serious: Yes (Hospitalization)
  Sender: FDA-Public Use
  Company Number: US-BEH-2014041078

PATIENT
  Sex: Male

DRUGS (4)
  1. BERINERT [Suspect]
     Indication: HEREDITARY ANGIOEDEMA
  2. BERINERT [Suspect]
     Indication: PAIN
  3. CINRYZE [Suspect]
     Indication: HEREDITARY ANGIOEDEMA
     Dosage: 500 UNIT INJECTION
     Route: 042
     Dates: start: 20131210, end: 20140225
  4. CINRYZE [Suspect]
     Indication: PROPHYLAXIS
     Dosage: 500 UNIT INJECTION
     Route: 042
     Dates: start: 20131210, end: 20140225

REACTIONS (3)
  - Hereditary angioedema [Recovered/Resolved]
  - Condition aggravated [Recovered/Resolved]
  - Amnesia [Recovered/Resolved]
